FAERS Safety Report 12080946 (Version 1)
Quarter: 2016Q1

REPORT INFORMATION
  Report Type: Spontaneous
  Country: DE (occurrence: DE)
  Receive Date: 20160216
  Receipt Date: 20160216
  Transmission Date: 20160526
  Serious: Yes (Life-Threatening, Hospitalization)
  Sender: FDA-Public Use
  Company Number: DE-ASTRAZENECA-2016SE14117

PATIENT
  Age: 74 Year
  Sex: Male

DRUGS (9)
  1. EZETROL [Concomitant]
     Active Substance: EZETIMIBE
  2. ALLOBETA [Concomitant]
     Dosage: 300, 1 IN 1 DAY
  3. TAMSULOSIN [Concomitant]
     Active Substance: TAMSULOSIN
  4. ZODIN [Concomitant]
  5. NOVONORM [Concomitant]
     Active Substance: REPAGLINIDE
  6. JANUMET [Concomitant]
     Active Substance: METFORMIN HYDROCHLORIDE\SITAGLIPTIN PHOSPHATE
     Dosage: 2 IN 1 DAY
  7. HYDROCHLOROTHIAZIDE. [Concomitant]
     Active Substance: HYDROCHLOROTHIAZIDE
  8. PROVAS COMP [Concomitant]
     Dosage: 80 MG/12.5 MG, 1 IN 1 DAY
  9. FORXIGA [Suspect]
     Active Substance: DAPAGLIFLOZIN
     Route: 048

REACTIONS (2)
  - Urinary incontinence [Recovering/Resolving]
  - Urinary retention [Recovering/Resolving]

NARRATIVE: CASE EVENT DATE: 20150107
